FAERS Safety Report 12801321 (Version 1)
Quarter: 2016Q4

REPORT INFORMATION
  Report Type: Report from Study
  Country: US (occurrence: US)
  Receive Date: 20161003
  Receipt Date: 20161003
  Transmission Date: 20170207
  Serious: Yes (Hospitalization, Disabling, Other)
  Sender: FDA-Public Use
  Company Number: US-AMGEN-USASL2016132793

PATIENT
  Age: 62 Year
  Sex: Male

DRUGS (4)
  1. ENBREL [Suspect]
     Active Substance: ETANERCEPT
     Indication: PSORIATIC ARTHROPATHY
     Dosage: 50 MG, ONCE A WEEK
     Route: 065
  2. CIMETIDINE [Concomitant]
     Active Substance: CIMETIDINE
     Dosage: UNK
  3. PREDNISONE. [Concomitant]
     Active Substance: PREDNISONE
     Dosage: UNK
  4. HYDROCODONE [Concomitant]
     Active Substance: HYDROCODONE
     Indication: PAIN
     Dosage: UNK UNK, AS NECESSARY

REACTIONS (10)
  - Drug ineffective [Unknown]
  - Surgery [Unknown]
  - Spinal operation [Unknown]
  - Spinal fusion surgery [Unknown]
  - Drug dose omission [Unknown]
  - Suicidal ideation [Unknown]
  - Paralysis [Unknown]
  - Psoriatic arthropathy [Unknown]
  - Joint range of motion decreased [Unknown]
  - Disability [Unknown]

NARRATIVE: CASE EVENT DATE: 2010
